FAERS Safety Report 18517315 (Version 1)
Quarter: 2020Q4

REPORT INFORMATION
  Report Type: Spontaneous
  Country: US (occurrence: US)
  Receive Date: 20201118
  Receipt Date: 20201118
  Transmission Date: 20210114
  Serious: Yes (Death)
  Sender: FDA-Public Use
  Company Number: None

PATIENT
  Age: 50 Year
  Sex: Female

DRUGS (1)
  1. RIVAROXABAN [Suspect]
     Active Substance: RIVAROXABAN

REACTIONS (6)
  - Cardio-respiratory arrest [None]
  - Haemoptysis [None]
  - Acute kidney injury [None]
  - Pulmonary embolism [None]
  - Shock [None]
  - Haemoglobin decreased [None]

NARRATIVE: CASE EVENT DATE: 20200621
